FAERS Safety Report 7269740-3 (Version None)
Quarter: 2011Q1

REPORT INFORMATION
  Report Type: 
  Country: None (occurrence: None)
  Receive Date: 20110124
  Receipt Date: 20110110
  Transmission Date: 20110831
  Serious: Yes (Hospitalization)
  Sender: FDA-Public Use
  Company Number: 2010AL000128

PATIENT
  Age: 81 Year
  Sex: Male
  Weight: 80 kg

DRUGS (3)
  1. CON MEDS [Concomitant]
  2. PREV MEDS [Concomitant]
  3. PRALATREXATE (PRALTREXATE) [Suspect]
     Indication: BLADDER CANCER
     Dosage: 176 MG;QOW;IV
     Route: 042
     Dates: start: 20100913, end: 20101014

REACTIONS (2)
  - PERICARDITIS [None]
  - PAIN IN EXTREMITY [None]
